FAERS Safety Report 6955872-3 (Version None)
Quarter: 2010Q3

REPORT INFORMATION
  Report Type: 
  Country: None (occurrence: None)
  Receive Date: 20100830
  Receipt Date: 20100824
  Transmission Date: 20110219
  Serious: Yes (Hospitalization)
  Sender: FDA-Public Use
  Company Number: CO-ROCHE-723085

PATIENT
  Sex: Female

DRUGS (4)
  1. CELLCEPT [Suspect]
     Indication: SYSTEMIC LUPUS ERYTHEMATOSUS
     Dosage: FREQUENCY: QD
     Route: 048
     Dates: start: 20090217
  2. MABTHERA [Suspect]
     Indication: SYSTEMIC LUPUS ERYTHEMATOSUS
     Dosage: FREQUENCY: Q6 MONTH
     Route: 042
     Dates: start: 20090724
  3. PREDNISOLONE [Concomitant]
     Indication: SYSTEMIC LUPUS ERYTHEMATOSUS
     Dosage: DOSE: 15 MG QD
     Route: 048
  4. OMEPRAZOLE [Concomitant]
     Dosage: DOSE: 20 MG QD
     Route: 048

REACTIONS (2)
  - DIARRHOEA [None]
  - HAEMATEMESIS [None]
